FAERS Safety Report 4920281-5 (Version None)
Quarter: 2006Q1

REPORT INFORMATION
  Report Type: 
  Country: None (occurrence: None)
  Receive Date: 20060223
  Receipt Date: 20060118
  Transmission Date: 20060701
  Serious: Yes (Hospitalization)
  Sender: FDA-Public Use
  Company Number: FR-GLAXOSMITHKLINE-B0407907A

PATIENT
  Age: 54 Year
  Sex: Male
  Weight: 98 kg

DRUGS (4)
  1. COMBIVIR [Suspect]
     Indication: HIV INFECTION
     Dosage: 1UNIT TWICE PER DAY
     Route: 048
     Dates: start: 20051017, end: 20060117
  2. VIRAMUNE [Suspect]
     Indication: HIV INFECTION
     Dosage: 1UNIT TWICE PER DAY
     Route: 048
     Dates: start: 20051017
  3. PREVISCAN [Concomitant]
     Indication: PROTEIN S DEFICIENCY
     Dosage: 1UNIT PER DAY
     Route: 048
     Dates: start: 19960101
  4. DEPAKENE [Concomitant]
     Indication: POST-TRAUMATIC EPILEPSY
     Dosage: 1UNIT PER DAY
     Route: 048
     Dates: start: 19770101

REACTIONS (3)
  - ANAEMIA [None]
  - INFLAMMATION [None]
  - PHLEBITIS [None]
